FAERS Safety Report 9381656 (Version 1)
Quarter: 2013Q3

REPORT INFORMATION
  Report Type: Spontaneous
  Country: IN (occurrence: IN)
  Receive Date: 20130703
  Receipt Date: 20130703
  Transmission Date: 20140515
  Serious: Yes (Other)
  Sender: FDA-Public Use
  Company Number: IN-JNJFOC-20130619579

PATIENT
  Age: 58 Year
  Sex: Female

DRUGS (1)
  1. DOXORUBICIN [Suspect]
     Indication: BREAST CANCER
     Route: 042

REACTIONS (2)
  - Pulmonary arterial hypertension [Unknown]
  - Left ventricular hypertrophy [Unknown]
